FAERS Safety Report 14121163 (Version 1)
Quarter: 2017Q4

REPORT INFORMATION
  Report Type: Spontaneous
  Country: US (occurrence: US)
  Receive Date: 20171024
  Receipt Date: 20171024
  Transmission Date: 20180321
  Serious: No
  Sender: FDA-Public Use
  Company Number: US-PERRIGO-17US025473

PATIENT
  Age: 69 Year
  Sex: Male
  Weight: 70.3 kg

DRUGS (3)
  1. ANTIGLAUCOMA PREPARATIONS AND MIOTICS [Concomitant]
     Active Substance: UNSPECIFIED INGREDIENT
     Indication: BORDERLINE GLAUCOMA
     Dosage: UNK
     Route: 047
  2. OTHER COLD PREPARATIONS [Concomitant]
     Active Substance: UNSPECIFIED INGREDIENT
     Indication: PROPHYLAXIS
     Dosage: UNK
     Route: 045
  3. IMIQUIMOD. [Suspect]
     Active Substance: IMIQUIMOD
     Indication: ACTINIC KERATOSIS
     Dosage: 12.5 MG, QD
     Route: 061
     Dates: start: 20170716, end: 20170725

REACTIONS (3)
  - Fatigue [Not Recovered/Not Resolved]
  - Inappropriate schedule of drug administration [Recovered/Resolved]
  - Pain [Not Recovered/Not Resolved]

NARRATIVE: CASE EVENT DATE: 20170716
